FAERS Safety Report 7901862-3 (Version None)
Quarter: 2011Q4

REPORT INFORMATION
  Report Type: 
  Country: None (occurrence: None)
  Receive Date: 20111108
  Receipt Date: 20111103
  Transmission Date: 20120403
  Serious: Yes (Hospitalization, Disabling, Other)
  Sender: FDA-Public Use
  Company Number: US-MERCK-1107USA03696

PATIENT
  Age: 69 Year
  Sex: Female

DRUGS (6)
  1. OMEPRAZOLE [Concomitant]
     Route: 065
     Dates: start: 20060801, end: 20070601
  2. DARVOCET-N 50 [Concomitant]
     Route: 065
     Dates: start: 20020701, end: 20090101
  3. FOSAMAX [Suspect]
     Route: 048
     Dates: start: 20080101, end: 20080701
  4. FOSAMAX [Suspect]
     Indication: OSTEOPENIA
     Route: 048
     Dates: start: 20041001, end: 20080101
  5. CIMETIDINE [Concomitant]
     Route: 065
     Dates: start: 20010701
  6. FOSAMAX [Suspect]
     Indication: OSTEOPOROSIS
     Route: 048
     Dates: start: 20041001, end: 20080101

REACTIONS (9)
  - OSTEONECROSIS OF JAW [None]
  - ORAL INFECTION [None]
  - IMPAIRED HEALING [None]
  - GINGIVAL BLEEDING [None]
  - OSTEOMYELITIS [None]
  - ARTHROPATHY [None]
  - ANAEMIA [None]
  - DENTAL CARIES [None]
  - ORAL TORUS [None]
